FAERS Safety Report 7432397-2 (Version None)
Quarter: 2011Q2

REPORT INFORMATION
  Report Type: 
  Country: None (occurrence: None)
  Receive Date: 20110415
  Receipt Date: 20110412
  Transmission Date: 20111010
  Serious: Yes (Death, Hospitalization, Other)
  Sender: FDA-Public Use
  Company Number: 2011SP000433

PATIENT
  Age: 62 Year
  Sex: Male
  Weight: 101 kg

DRUGS (24)
  1. LACTULOSE [Concomitant]
  2. MEGESTROL ACETATE [Concomitant]
  3. ABT-888 [Suspect]
     Indication: PROSTATE CANCER
     Dosage: 40 MG;BID;PO
     Route: 048
     Dates: start: 20100810, end: 20101108
  4. LOSARTAN POTASSIUM [Concomitant]
  5. ASPIRIN [Concomitant]
  6. ZOLEDRONIC ACID [Concomitant]
  7. GLIPIZIDE [Concomitant]
  8. LEUPROLIDE ACETATE [Concomitant]
  9. TYLOX [Concomitant]
  10. SENNA ALEXANDRINA [Concomitant]
  11. ATENOLOL [Concomitant]
  12. CENTRUM SILVER [Concomitant]
  13. LEKOVIT [Concomitant]
  14. IBUPROFEN [Concomitant]
  15. MEGESTROL ACETATE [Concomitant]
  16. COLECALCIFEROL [Concomitant]
  17. INSULIN HUMAN INJECTION , ISOPHANE [Concomitant]
  18. INSULIN HUMAN [Concomitant]
  19. MS CONTIN [Concomitant]
  20. CORICIDIN [Concomitant]
  21. IBUPROFEN [Concomitant]
  22. TEMOZOLOMIDE [Suspect]
     Indication: PROSTATE CANCER
     Dosage: PO
     Route: 048
     Dates: start: 20100810
  23. TAMSULOSIN HCL [Concomitant]
  24. FUROSEMIDE [Concomitant]

REACTIONS (31)
  - COLD SWEAT [None]
  - THROMBOCYTOPENIA [None]
  - ANAEMIA [None]
  - BLOOD UREA INCREASED [None]
  - BLOOD GLUCOSE INCREASED [None]
  - BLOOD LACTATE DEHYDROGENASE INCREASED [None]
  - RENAL FAILURE [None]
  - INFECTION [None]
  - BACK PAIN [None]
  - HEPATIC FAILURE [None]
  - BLOOD CREATININE INCREASED [None]
  - PRODUCTIVE COUGH [None]
  - ASPARTATE AMINOTRANSFERASE INCREASED [None]
  - HAEMOGLOBIN DECREASED [None]
  - HAEMATOCRIT DECREASED [None]
  - ATELECTASIS [None]
  - EPISTAXIS [None]
  - METASTATIC NEOPLASM [None]
  - ALANINE AMINOTRANSFERASE INCREASED [None]
  - BLOOD ALKALINE PHOSPHATASE INCREASED [None]
  - HYPOTENSION [None]
  - DYSPNOEA [None]
  - PAIN IN JAW [None]
  - PYREXIA [None]
  - BLOOD CALCIUM INCREASED [None]
  - RED BLOOD CELL COUNT DECREASED [None]
  - PLATELET COUNT DECREASED [None]
  - PNEUMONIA [None]
  - HEPATORENAL SYNDROME [None]
  - OXYGEN SATURATION DECREASED [None]
  - RESPIRATORY FAILURE [None]
